FAERS Safety Report 23452437 (Version 1)
Quarter: 2024Q1

REPORT INFORMATION
  Report Type: Spontaneous
  Country: US (occurrence: None)
  Receive Date: 20240128
  Receipt Date: 20240128
  Transmission Date: 20240409
  Serious: Yes (Life-Threatening, Disabling, Other)
  Sender: FDA-Public Use
  Company Number: None

PATIENT
  Age: 67 Year
  Sex: Female
  Weight: 90 kg

DRUGS (1)
  1. ENBREL [Suspect]
     Active Substance: ETANERCEPT
     Indication: Rheumatoid arthritis
     Dosage: OTHER QUANTITY : 4 INJECTION(S);?OTHER FREQUENCY : WEEKLY;?
     Route: 058
     Dates: start: 20231128, end: 20240116

REACTIONS (21)
  - Adverse drug reaction [None]
  - Feeling cold [None]
  - Headache [None]
  - Vision blurred [None]
  - Diplopia [None]
  - Taste disorder [None]
  - Nausea [None]
  - Abdominal distension [None]
  - Diarrhoea [None]
  - Arthralgia [None]
  - Arthralgia [None]
  - Pain in extremity [None]
  - Irritability [None]
  - Restlessness [None]
  - Pruritus [None]
  - Palpitations [None]
  - Seizure [None]
  - Dyspnoea [None]
  - Agitation [None]
  - Somnolence [None]
  - Tremor [None]

NARRATIVE: CASE EVENT DATE: 20240103
